FAERS Safety Report 6153332-3 (Version None)
Quarter: 2009Q2

REPORT INFORMATION
  Report Type: 
  Country: None (occurrence: None)
  Receive Date: 20090413
  Receipt Date: 20090408
  Transmission Date: 20091009
  Serious: Yes (Hospitalization)
  Sender: FDA-Public Use
  Company Number: US-GILEAD-2009-0021388

PATIENT
  Sex: Male

DRUGS (15)
  1. LETAIRIS [Suspect]
     Indication: PULMONARY ARTERIAL HYPERTENSION
     Route: 048
  2. COUMADIN [Concomitant]
  3. CARDIZEM [Concomitant]
  4. DIGOXIN [Concomitant]
  5. ZETIA [Concomitant]
  6. LASIX [Concomitant]
  7. SPIRIVA [Concomitant]
  8. ALBUTEROL [Concomitant]
  9. KLOR-CON [Concomitant]
  10. NOVOLOG [Concomitant]
  11. LANTUS [Concomitant]
  12. PREDNISONE TAB [Concomitant]
  13. ALLOPURINOL [Concomitant]
  14. NEXIUM [Concomitant]
  15. IRON [Concomitant]

REACTIONS (2)
  - LUNG INFECTION PSEUDOMONAL [None]
  - OEDEMA PERIPHERAL [None]
